FAERS Safety Report 20531984 (Version 2)
Quarter: 2022Q1

REPORT INFORMATION
  Report Type: Spontaneous
  Country: GB (occurrence: GB)
  Receive Date: 20220301
  Receipt Date: 20220310
  Transmission Date: 20220423
  Serious: Yes (Other)
  Sender: FDA-Public Use
  Company Number: None

PATIENT
  Age: 45 Year
  Sex: Female

DRUGS (2)
  1. PROVERA [Suspect]
     Active Substance: MEDROXYPROGESTERONE ACETATE
     Indication: Vaginal haemorrhage
     Dosage: 10 MG, 3X/DAY
     Dates: start: 20220211
  2. COPPER [Concomitant]
     Active Substance: COPPER
     Dosage: COPPER COIL

REACTIONS (5)
  - Headache [Not Recovered/Not Resolved]
  - Premenstrual syndrome [Unknown]
  - Anxiety [Unknown]
  - Restlessness [Unknown]
  - Emotional disorder [Unknown]

NARRATIVE: CASE EVENT DATE: 20220212
